FAERS Safety Report 24611576 (Version 2)
Quarter: 2024Q4

REPORT INFORMATION
  Report Type: Other
  Country: CA (occurrence: CA)
  Receive Date: 20241113
  Receipt Date: 20241114
  Transmission Date: 20250115
  Serious: Yes (Death, Other)
  Sender: APOTEX
  Company Number: CA-APOTEX-2024AP017447

PATIENT
  Sex: Female

DRUGS (1)
  1. PREGABALIN [Suspect]
     Active Substance: PREGABALIN
     Indication: Product used for unknown indication
     Dosage: 100 MILLIGRAM, QD
     Route: 048

REACTIONS (1)
  - Death [Fatal]
